FAERS Safety Report 6347755-7 (Version None)
Quarter: 2009Q3

REPORT INFORMATION
  Report Type: 
  Country: None (occurrence: None)
  Receive Date: 20090910
  Receipt Date: 20090831
  Transmission Date: 20100115
  Serious: Yes (Other)
  Sender: FDA-Public Use
  Company Number: A0802682A

PATIENT
  Age: 40 Year
  Sex: Female
  Weight: 64 kg

DRUGS (7)
  1. VALTREX [Suspect]
     Dates: start: 20090101
  2. REBIF [Suspect]
     Indication: MULTIPLE SCLEROSIS
     Dosage: 44MCG THREE TIMES PER WEEK
     Route: 058
     Dates: start: 20081029, end: 20090401
  3. SYNTHROID [Concomitant]
     Indication: HYPOTHYROIDISM
     Dates: start: 20000101
  4. EFFEXOR [Concomitant]
     Indication: DEPRESSION
     Dates: start: 20080101
  5. MEDROL [Concomitant]
  6. SOLU-MEDROL [Concomitant]
     Route: 030
  7. DARVOCET [Concomitant]

REACTIONS (9)
  - CONJUNCTIVITIS INFECTIVE [None]
  - CONTUSION [None]
  - FATIGUE [None]
  - HEPATIC ENZYME INCREASED [None]
  - HERPES ZOSTER [None]
  - LYMPHADENOPATHY [None]
  - PAIN [None]
  - PHARYNGITIS STREPTOCOCCAL [None]
  - WHITE BLOOD CELL COUNT DECREASED [None]
